FAERS Safety Report 7901956-2 (Version None)
Quarter: 2011Q4

REPORT INFORMATION
  Report Type: 
  Country: None (occurrence: None)
  Receive Date: 20111108
  Receipt Date: 20111028
  Transmission Date: 20120403
  Serious: Yes (Hospitalization)
  Sender: FDA-Public Use
  Company Number: US-BAYER-2011-106998

PATIENT
  Age: 29 Year
  Sex: Female
  Weight: 74.83 kg

DRUGS (5)
  1. YAZ [Suspect]
     Indication: GENITAL HAEMORRHAGE
  2. YAZ [Suspect]
     Indication: CONTRACEPTION
     Dosage: UNK
     Dates: start: 20060101, end: 20090801
  3. MULTIVITAMINS WITH MINERALS [MULTIVITAMINS WITH MINERALS] [Concomitant]
     Dosage: UNK UNK, QD, DAILY
     Route: 048
  4. IBUPROFEN [Concomitant]
     Dosage: AS NEEDED
     Route: 048
  5. AMOXICILLIN [Concomitant]
     Dosage: 375 MG, UNK
     Dates: start: 20080825

REACTIONS (4)
  - FAT INTOLERANCE [None]
  - DIARRHOEA [None]
  - ABDOMINAL PAIN [None]
  - DYSPEPSIA [None]
